FAERS Safety Report 7609201-2 (Version None)
Quarter: 2011Q3

REPORT INFORMATION
  Report Type: 
  Country: None (occurrence: None)
  Receive Date: 20110706
  Receipt Date: 20110621
  Transmission Date: 20111222
  Serious: Yes (Life-Threatening, Hospitalization)
  Sender: FDA-Public Use
  Company Number: 2011MA007874

PATIENT
  Age: 27 Year
  Sex: Male

DRUGS (6)
  1. RIFAMPIN [Suspect]
     Indication: BRUCELLOSIS
     Dosage: 600 MG; QD; PO
     Route: 048
  2. TRIMETHOPRIM [Concomitant]
  3. GENTAMICIN [Concomitant]
  4. VANCOMYCIN [Concomitant]
  5. DOXYCYCLINE [Concomitant]
  6. SULFAMETHOXAZOLE [Concomitant]

REACTIONS (7)
  - PYREXIA [None]
  - CANDIDIASIS [None]
  - RESPIRATORY FAILURE [None]
  - NO THERAPEUTIC RESPONSE [None]
  - LEUKOCYTOSIS [None]
  - LEFT VENTRICULAR FAILURE [None]
  - AORTIC VALVE DISEASE [None]
